FAERS Safety Report 9823307 (Version 3)
Quarter: 2014Q1

REPORT INFORMATION
  Report Type: Spontaneous
  Country: US (occurrence: US)
  Receive Date: 20140116
  Receipt Date: 20140307
  Transmission Date: 20141002
  Serious: Yes (Hospitalization)
  Sender: FDA-Public Use
  Company Number: CHPA2014US000922

PATIENT
  Age: 96 Year
  Sex: Female

DRUGS (3)
  1. IBUPROFEN [Suspect]
     Indication: ARTHRITIS
  2. IBUPROFEN [Suspect]
     Indication: JOINT SWELLING
  3. VOLTAREN EMULGEL ^NOVARTIS^ [Concomitant]
     Dosage: UNK
     Dates: start: 20140108

REACTIONS (6)
  - Derealisation [Recovered/Resolved]
  - Pain [Not Recovered/Not Resolved]
  - Malaise [Unknown]
  - Anxiety [Unknown]
  - Melaena [Recovered/Resolved]
  - Abdominal pain upper [Unknown]
